FAERS Safety Report 20331158 (Version 1)
Quarter: 2022Q1

REPORT INFORMATION
  Report Type: Report from Study
  Country: JP (occurrence: JP)
  Receive Date: 20220113
  Receipt Date: 20220113
  Transmission Date: 20220423
  Serious: Yes (Hospitalization)
  Sender: FDA-Public Use
  Company Number: JP-BRISTOL-MYERS SQUIBB COMPANY-BMS-2021-144853

PATIENT
  Age: 76 Year
  Sex: Female
  Weight: 43 kg

DRUGS (15)
  1. NIVOLUMAB [Suspect]
     Active Substance: NIVOLUMAB
     Indication: Bile duct cancer stage I
     Dosage: DAILY DOSE 480 MG
     Route: 042
     Dates: start: 20210325, end: 20210325
  2. NIVOLUMAB [Suspect]
     Active Substance: NIVOLUMAB
     Dosage: DAILY DOSE 480 MG
     Route: 042
     Dates: start: 20210422, end: 20210422
  3. NIVOLUMAB [Suspect]
     Active Substance: NIVOLUMAB
     Dosage: DAILY DOSE 480 MG
     Route: 042
     Dates: start: 20210520, end: 20210520
  4. NIVOLUMAB [Suspect]
     Active Substance: NIVOLUMAB
     Dosage: DAILY DOSE 480 MG
     Route: 042
     Dates: start: 20210617, end: 20210617
  5. NIVOLUMAB [Suspect]
     Active Substance: NIVOLUMAB
     Dosage: 0 MG
     Route: 042
     Dates: start: 20210715, end: 20210715
  6. REGORAFENIB [Suspect]
     Active Substance: REGORAFENIB
     Indication: Bile duct cancer stage I
     Dosage: 90 MILLIGRAM
     Route: 048
     Dates: start: 20210325, end: 20210407
  7. REGORAFENIB [Suspect]
     Active Substance: REGORAFENIB
     Dosage: 0 MILLIGRAM
     Route: 048
     Dates: start: 20210408, end: 20210414
  8. REGORAFENIB [Suspect]
     Active Substance: REGORAFENIB
     Dosage: 90 MILLIGRAM
     Route: 048
     Dates: start: 20210422, end: 20210512
  9. REGORAFENIB [Suspect]
     Active Substance: REGORAFENIB
     Dosage: 90 MILLIGRAM
     Route: 048
     Dates: start: 20210520, end: 20210530
  10. REGORAFENIB [Suspect]
     Active Substance: REGORAFENIB
     Dosage: 0 MILLIGRAM
     Route: 048
     Dates: start: 20210531, end: 20210602
  11. REGORAFENIB [Suspect]
     Active Substance: REGORAFENIB
     Dosage: 60 MILLIGRAM
     Route: 048
     Dates: start: 20210603, end: 20210609
  12. REGORAFENIB [Suspect]
     Active Substance: REGORAFENIB
     Dosage: 60 MILLIGRAM
     Route: 048
     Dates: start: 20210617, end: 20210707
  13. REGORAFENIB [Suspect]
     Active Substance: REGORAFENIB
     Dosage: 0 MILLIGRAM
     Route: 048
     Dates: start: 20210715
  14. OXYCODONE [Concomitant]
     Active Substance: OXYCODONE
     Indication: Product used for unknown indication
     Dosage: UNK
     Route: 065
     Dates: start: 20210617
  15. OXYCODONE HYDROCHLORIDE [Concomitant]
     Active Substance: OXYCODONE HYDROCHLORIDE
     Indication: Product used for unknown indication
     Dosage: UNK
     Route: 065
     Dates: start: 20210520

REACTIONS (1)
  - Hypopituitarism [Recovering/Resolving]

NARRATIVE: CASE EVENT DATE: 20210716
